FAERS Safety Report 15416487 (Version 1)
Quarter: 2018Q3

REPORT INFORMATION
  Report Type: Spontaneous
  Country: JP (occurrence: JP)
  Receive Date: 20180924
  Receipt Date: 20180924
  Transmission Date: 20181010
  Serious: Yes (Other)
  Sender: FDA-Public Use
  Company Number: JP-SUN PHARMACEUTICAL INDUSTRIES LTD-2018RR-183996

PATIENT
  Age: 44 Year
  Sex: Male
  Weight: 66.5 kg

DRUGS (11)
  1. CAPECITABINE. [Suspect]
     Active Substance: CAPECITABINE
     Indication: RECTAL ADENOCARCINOMA
     Dosage: 2000 MG/M2, DAILY, EVERY 3 WEEKS, TOTAL OF 14 COURSES
     Route: 065
     Dates: start: 201102
  2. CALCIUM FOLINAT [Suspect]
     Active Substance: LEUCOVORIN CALCIUM
     Indication: RECTAL ADENOCARCINOMA
     Dosage: 200 MG/M2, 15 COURSES, EVERY 2 WEEKS
     Route: 065
     Dates: start: 201204
  3. BEVACIZUMAB. [Suspect]
     Active Substance: BEVACIZUMAB
     Indication: RECTAL ADENOCARCINOMA
     Dosage: 7.5 MG/M2, EVERY 3 WEEKS, TOTAL OF 14 COURSES
     Route: 065
     Dates: start: 201102
  4. 5?FU [Suspect]
     Active Substance: FLUOROURACIL
     Indication: RECTAL ADENOCARCINOMA
     Dosage: 400 MG/M2, BOLUS, CONTINUOUS 2,400 MG/M2, 15 COURSES, EVERY 2 WEEKS
     Route: 040
     Dates: start: 201204
  5. CETUXIMAB. [Suspect]
     Active Substance: CETUXIMAB
     Indication: RECTAL ADENOCARCINOMA
     Dosage: 500 MG/M2, UNK
     Route: 065
     Dates: start: 201204
  6. CALCIUM FOLINAT [Suspect]
     Active Substance: LEUCOVORIN CALCIUM
     Dosage: 200 MG/M2, MFOLFOX6 THERAPY
     Route: 065
  7. OXALIPLATIN. [Suspect]
     Active Substance: OXALIPLATIN
     Indication: RECTAL ADENOCARCINOMA
     Dosage: 130 MG/M2, EVERY 3 WEEKS, TOTAL OF 14 COURSES
     Route: 065
     Dates: start: 201102
  8. IRINOTECAN [Suspect]
     Active Substance: IRINOTECAN
     Indication: RECTAL ADENOCARCINOMA
     Dosage: 150 MG/M2, 15 COURSES, EVERY 2 WEEKS
     Route: 065
     Dates: start: 201204
  9. 5?FU [Suspect]
     Active Substance: FLUOROURACIL
     Dosage: BOLUS 400 MG/M2, MAINTENANCE 2,400 MG/M2, MFOLFOX6 THERAPY
     Route: 040
  10. BEVACIZUMAB. [Suspect]
     Active Substance: BEVACIZUMAB
     Dosage: 5 MG/KG
     Route: 065
  11. OXALIPLATIN. [Suspect]
     Active Substance: OXALIPLATIN
     Dosage: 85 MG/M2, MFOLFOX6 THERAPY
     Route: 065

REACTIONS (6)
  - Disease progression [Unknown]
  - Hydronephrosis [Unknown]
  - Therapy partial responder [Unknown]
  - Palmar-plantar erythrodysaesthesia syndrome [Unknown]
  - Hypersensitivity [Unknown]
  - Disease recurrence [Unknown]
